FAERS Safety Report 7449893-4 (Version None)
Quarter: 2011Q2

REPORT INFORMATION
  Report Type: 
  Country: None (occurrence: None)
  Receive Date: 20110502
  Receipt Date: 20110314
  Transmission Date: 20111010
  Serious: Yes (Hospitalization, Other)
  Sender: FDA-Public Use
  Company Number: US-BAYER-2011-017193

PATIENT
  Sex: Female
  Weight: 58 kg

DRUGS (4)
  1. YASMIN [Suspect]
     Indication: ACNE
  2. YASMIN [Suspect]
     Indication: ORAL CONTRACEPTION
     Dosage: UNK
     Dates: start: 20030101, end: 20060101
  3. GENTAMICIN [Concomitant]
     Indication: URINARY TRACT INFECTION
  4. BACTRIM [Concomitant]
     Indication: URINARY TRACT INFECTION

REACTIONS (4)
  - PAINFUL RESPIRATION [None]
  - PULMONARY EMBOLISM [None]
  - FLANK PAIN [None]
  - CHEST PAIN [None]
